FAERS Safety Report 7288643-1 (Version None)
Quarter: 2011Q1

REPORT INFORMATION
  Report Type: 
  Country: None (occurrence: None)
  Receive Date: 20110211
  Receipt Date: 20110209
  Transmission Date: 20110831
  Serious: Yes (Other)
  Sender: FDA-Public Use
  Company Number: US-PFIZER INC-2011029728

PATIENT
  Sex: Male
  Weight: 68 kg

DRUGS (2)
  1. VITAMIN E [Concomitant]
     Dosage: UNK
  2. LIPITOR [Suspect]
     Indication: BLOOD CHOLESTEROL INCREASED
     Dosage: 40 MG, DAILY
     Route: 048

REACTIONS (3)
  - ATAXIA [None]
  - HYPERTENSION [None]
  - MUSCULAR WEAKNESS [None]
